FAERS Safety Report 23571132 (Version 3)
Quarter: 2024Q2

REPORT INFORMATION
  Report Type: Spontaneous
  Country: US (occurrence: US)
  Receive Date: 20240227
  Receipt Date: 20240619
  Transmission Date: 20240716
  Serious: Yes (Congenital Anomaly, Other)
  Sender: FDA-Public Use
  Company Number: US-UCBSA-2024008795

PATIENT
  Age: 0 Year
  Sex: Male
  Weight: 2.409 kg

DRUGS (18)
  1. CIMZIA [Suspect]
     Active Substance: CERTOLIZUMAB PEGOL
     Indication: Psoriasis
     Dosage: 200 MILLIGRAM, EV 2 WEEKS(QOW)
     Route: 064
     Dates: start: 20230602, end: 20230616
  2. CIMZIA [Suspect]
     Active Substance: CERTOLIZUMAB PEGOL
     Dosage: 400 MILLIGRAM, EV 4 WEEKS
     Route: 064
     Dates: start: 20230630
  3. METFORMIN [Concomitant]
     Active Substance: METFORMIN HYDROCHLORIDE
     Indication: Polycystic ovarian syndrome
     Dosage: 500 MILLIGRAM, ONCE DAILY (QD)
     Route: 064
  4. LEVOTHYROXINE [Concomitant]
     Active Substance: LEVOTHYROXINE\LEVOTHYROXINE SODIUM
     Indication: Hypothyroidism
     Dosage: 50 MICROGRAM, ONCE DAILY (QD)
     Route: 064
  5. VITAMIN D NOS [Concomitant]
     Active Substance: CHOLECALCIFEROL\ERGOCALCIFEROL
     Indication: Breast feeding
     Dosage: UNK
  6. MINERALS\VITAMINS [Concomitant]
     Active Substance: MINERALS\VITAMINS
     Indication: Pregnancy
     Dosage: 1 TABLET
     Route: 064
  7. HEP B VAX [Concomitant]
     Indication: Immunisation
     Dosage: UNK
     Dates: start: 20231219
  8. HEP B VAX [Concomitant]
     Dosage: UNK
     Dates: start: 20240122
  9. DIPHTHERIA AND TETANUS TOXOIDS AND ACELLULAR PERTUSSIS VACCINE ADSORBE [Concomitant]
     Active Substance: DIPHTHERIA AND TETANUS TOXOIDS AND ACELLULAR PERTUSSIS VACCINE ADSORBED
     Indication: Immunisation
     Dosage: UNK
     Dates: start: 20240219
  10. DIPHTHERIA AND TETANUS TOXOIDS AND ACELLULAR PERTUSSIS VACCINE ADSORBE [Concomitant]
     Active Substance: DIPHTHERIA AND TETANUS TOXOIDS AND ACELLULAR PERTUSSIS VACCINE ADSORBED
     Dosage: UNK
     Dates: start: 20240419
  11. HAEMOPHILUS B CONJUGATE VACCINE NOS [Concomitant]
     Active Substance: HAEMOPHILUS B CONJUGATE VACCINE
     Indication: Immunisation
     Dosage: UNK
     Dates: start: 20240219
  12. HAEMOPHILUS B CONJUGATE VACCINE NOS [Concomitant]
     Active Substance: HAEMOPHILUS B CONJUGATE VACCINE
     Dosage: UNK
     Dates: start: 20240419
  13. POLIOMYELITIS VACCINE NOS [Concomitant]
     Active Substance: POLIOMYELITIS VACCINE
     Indication: Immunisation
     Dosage: UNK
     Dates: start: 20240219
  14. POLIOMYELITIS VACCINE NOS [Concomitant]
     Active Substance: POLIOMYELITIS VACCINE
     Dosage: UNK
     Dates: start: 20240419
  15. PNEUMOVAX 23 [Concomitant]
     Active Substance: PNEUMOCOCCAL VACCINE, POLYVALENT 23
     Indication: Immunisation
     Dosage: UNK
     Dates: start: 20240219
  16. PNEUMOVAX 23 [Concomitant]
     Active Substance: PNEUMOCOCCAL VACCINE, POLYVALENT 23
     Dosage: UNK
     Dates: start: 20240419
  17. HUMAN ROTAVIRUS A [Concomitant]
     Active Substance: HUMAN ROTAVIRUS A
     Indication: Immunisation
     Dosage: UNK
     Dates: start: 20240219
  18. HUMAN ROTAVIRUS A [Concomitant]
     Active Substance: HUMAN ROTAVIRUS A
     Dosage: UNK
     Dates: start: 20240419

REACTIONS (25)
  - Small for dates baby [Unknown]
  - Low birth weight baby [Unknown]
  - Cephalhaematoma [Unknown]
  - Birth trauma [Unknown]
  - Cardiac murmur [Unknown]
  - Atrial septal defect [Unknown]
  - Postnatal growth restriction [Recovered/Resolved]
  - Tethered oral tissue [Unknown]
  - Congenital umbilical hernia [Unknown]
  - Selective eating disorder [Recovered/Resolved]
  - COVID-19 [Recovered/Resolved]
  - Decreased appetite [Unknown]
  - Ear haemorrhage [Unknown]
  - Irritability [Unknown]
  - Otorrhoea [Unknown]
  - Viral infection [Unknown]
  - Respiratory tract congestion [Unknown]
  - Cough [Unknown]
  - Pyrexia [Recovered/Resolved]
  - Post procedural complication [Unknown]
  - Gingival swelling [Unknown]
  - Teething [Unknown]
  - Motor dysfunction [Unknown]
  - Tongue movement disturbance [Unknown]
  - Maternal exposure during pregnancy [Unknown]

NARRATIVE: CASE EVENT DATE: 20230602
